FAERS Safety Report 6907071-9 (Version None)
Quarter: 2010Q3

REPORT INFORMATION
  Report Type: 
  Country: None (occurrence: None)
  Receive Date: 20100804
  Receipt Date: 20081114
  Transmission Date: 20110219
  Serious: No
  Sender: FDA-Public Use
  Company Number: US-PFIZER INC-2007087207

PATIENT
  Sex: Male

DRUGS (3)
  1. NARDIL [Suspect]
     Indication: DEPRESSION
     Route: 048
  2. NARDIL [Suspect]
     Indication: POST-TRAUMATIC STRESS DISORDER
  3. NARDIL [Suspect]
     Indication: INSOMNIA

REACTIONS (2)
  - DRUG INEFFECTIVE [None]
  - HEADACHE [None]
